FAERS Safety Report 5608141-8 (Version None)
Quarter: 2008Q1

REPORT INFORMATION
  Report Type: 
  Country: None (occurrence: None)
  Receive Date: 20080130
  Receipt Date: 20080128
  Transmission Date: 20080703
  Serious: Yes (Other)
  Sender: FDA-Public Use
  Company Number: US-ASTRAZENECA-2007UW23398

PATIENT
  Age: 23 Year
  Sex: Female

DRUGS (17)
  1. ATENOLOL [Suspect]
     Indication: HYPERTENSION
     Route: 048
     Dates: start: 20071008, end: 20080109
  2. AUGMENTIN '250' [Concomitant]
     Dates: start: 20080111, end: 20080125
  3. PROSED DS [Concomitant]
     Dates: start: 20080110
  4. VISTARIL [Concomitant]
     Dates: start: 20080110
  5. LEVAQUIN [Concomitant]
     Dates: start: 20080108, end: 20080115
  6. PROVENTIL [Concomitant]
     Dates: start: 20071204
  7. VIBRAMYCIN [Concomitant]
     Dates: start: 20071204
  8. CHANTIX [Concomitant]
     Dates: start: 20071204
  9. ULTRAM [Concomitant]
     Dates: start: 20071010
  10. REGLAN [Concomitant]
     Dates: start: 20071204
  11. JUNEL FE [Concomitant]
     Dates: start: 20071130
  12. TESSALON [Concomitant]
     Dates: start: 20071121
  13. DECONAMINE SR [Concomitant]
     Dates: start: 20071121
  14. PHENERGAN HCL [Concomitant]
     Dates: start: 20071023
  15. PHENAZOPYRIDINE HCL TAB [Concomitant]
     Dates: start: 20071018
  16. ELAVIL [Concomitant]
     Dates: start: 20071018
  17. LEVSIN [Concomitant]
     Dates: start: 20071008

REACTIONS (1)
  - HYPERTENSION [None]
